FAERS Safety Report 23066502 (Version 5)
Quarter: 2023Q4

REPORT INFORMATION
  Report Type: Spontaneous
  Country: JP (occurrence: JP)
  Receive Date: 20231015
  Receipt Date: 20231230
  Transmission Date: 20240110
  Serious: Yes (Death, Hospitalization, Congenital Anomaly, Other)
  Sender: FDA-Public Use
  Company Number: JP-002147023-NVSJ2023JP014915

PATIENT
  Age: 0 Year
  Sex: Female
  Weight: 1.426 kg

DRUGS (8)
  1. ENTRESTO [Suspect]
     Active Substance: SACUBITRIL\VALSARTAN
     Indication: Foetal exposure during pregnancy
     Dosage: 200 MG, QD
     Route: 064
     Dates: end: 20231006
  2. FEBUXOSTAT [Concomitant]
     Active Substance: FEBUXOSTAT
     Indication: Foetal exposure during pregnancy
     Dosage: 20 MG, QD
     Route: 064
  3. ALFACALCIDOL [Concomitant]
     Active Substance: ALFACALCIDOL
     Indication: Foetal exposure during pregnancy
     Dosage: 0.5 UG, QD
     Route: 064
  4. FUROSEMIDE [Concomitant]
     Active Substance: FUROSEMIDE
     Indication: Foetal exposure during pregnancy
     Dosage: 40 MG, QD
     Route: 064
  5. CALCIUM CARBONATE [Concomitant]
     Active Substance: CALCIUM CARBONATE
     Indication: Foetal exposure during pregnancy
     Dosage: 500 MG, TID
     Route: 064
  6. LACTULOSE [Concomitant]
     Active Substance: LACTULOSE
     Indication: Foetal exposure during pregnancy
     Dosage: 12 G (2 PACKS TWICE DAILY)
     Route: 064
  7. AMITIZA [Concomitant]
     Active Substance: LUBIPROSTONE
     Indication: Foetal exposure during pregnancy
     Dosage: 24 UG
     Route: 064
  8. SODIUM PICOSULFATE [Concomitant]
     Active Substance: SODIUM PICOSULFATE
     Indication: Foetal exposure during pregnancy
     Dosage: AS NEEDED
     Route: 064

REACTIONS (10)
  - Pulmonary hypoplasia [Fatal]
  - Respiratory failure [Fatal]
  - Oxygen saturation decreased [Fatal]
  - Renal failure [Fatal]
  - Double outlet right ventricle [Not Recovered/Not Resolved]
  - Bradycardia [Unknown]
  - Potter^s syndrome [Not Recovered/Not Resolved]
  - Premature baby [Not Recovered/Not Resolved]
  - Low birth weight baby [Not Recovered/Not Resolved]
  - Foetal exposure during pregnancy [Unknown]

NARRATIVE: CASE EVENT DATE: 20231006
